FAERS Safety Report 6160903-7 (Version None)
Quarter: 2009Q2

REPORT INFORMATION
  Report Type: 
  Country: None (occurrence: None)
  Receive Date: 20090417
  Receipt Date: 20090417
  Transmission Date: 20091009
  Serious: Yes (Life-Threatening, Hospitalization, Disabling)
  Sender: FDA-Public Use
  Company Number: None

PATIENT
  Sex: Female
  Weight: 118.3888 kg

DRUGS (3)
  1. MINOCYCLINE HCL [Suspect]
     Indication: BRONCHITIS
     Dosage: ONCE DAILY PO
     Route: 048
     Dates: start: 20090407, end: 20090421
  2. MINOCYCLINE HCL [Suspect]
     Indication: SINUSITIS
     Dosage: ONCE DAILY PO
     Route: 048
     Dates: start: 20090407, end: 20090421
  3. MINOCYCLINE HCL [Concomitant]

REACTIONS (34)
  - ABDOMINAL DISCOMFORT [None]
  - ABDOMINAL PAIN UPPER [None]
  - ANAL PRURITUS [None]
  - ASTHENIA [None]
  - BLOOD PRESSURE DECREASED [None]
  - CHILLS [None]
  - CONFUSIONAL STATE [None]
  - CONTUSION [None]
  - DEAFNESS [None]
  - DECREASED APPETITE [None]
  - DIARRHOEA [None]
  - DIZZINESS [None]
  - DRY MOUTH [None]
  - DYSPHAGIA [None]
  - DYSPNOEA [None]
  - ERYTHEMA [None]
  - FATIGUE [None]
  - FEELING HOT [None]
  - HAEMORRHAGE [None]
  - HEADACHE [None]
  - HYPERHIDROSIS [None]
  - JOINT STIFFNESS [None]
  - JOINT SWELLING [None]
  - NAUSEA [None]
  - ORAL PAIN [None]
  - PRURITUS [None]
  - RASH [None]
  - SKIN DISCOLOURATION [None]
  - SUNBURN [None]
  - TINNITUS [None]
  - TONGUE DISCOLOURATION [None]
  - URTICARIA [None]
  - VISION BLURRED [None]
  - VULVOVAGINAL PRURITUS [None]
